FAERS Safety Report 11156578 (Version 1)
Quarter: 2015Q2

REPORT INFORMATION
  Report Type: Spontaneous
  Country: US (occurrence: US)
  Receive Date: 20150602
  Receipt Date: 20150602
  Transmission Date: 20150821
  Serious: Yes (Other)
  Sender: FDA-Public Use
  Company Number: US-MYLANLABS-2015M1018261

PATIENT

DRUGS (2)
  1. FOSINOPRIL [Suspect]
     Active Substance: FOSINOPRIL
     Route: 065
  2. HYDROCHLOROTHIAZIDE/METOPROLOL SUCCINATE [Suspect]
     Active Substance: HYDROCHLOROTHIAZIDE\METOPROLOL SUCCINATE
     Route: 065

REACTIONS (3)
  - Mycosis fungoides [Recovered/Resolved]
  - Pseudolymphoma [Recovered/Resolved]
  - Photosensitivity reaction [Recovered/Resolved]
